FAERS Safety Report 16477933 (Version 1)
Quarter: 2019Q2

REPORT INFORMATION
  Report Type: Spontaneous
  Country: US (occurrence: US)
  Receive Date: 20190626
  Receipt Date: 20190626
  Transmission Date: 20190711
  Serious: No
  Sender: FDA-Public Use
  Company Number: US-GLAXOSMITHKLINE-US2019111749

PATIENT
  Age: 78 Year
  Sex: Female

DRUGS (1)
  1. FLONASE SENSIMIST ALLERGY RELIEF [Suspect]
     Active Substance: FLUTICASONE FUROATE
     Indication: SINUS DISORDER
     Dosage: RIGHT SIDE MAINLY AT NIGHT
     Dates: start: 201903

REACTIONS (4)
  - Product use in unapproved indication [Unknown]
  - Drug effective for unapproved indication [Unknown]
  - Inappropriate schedule of product administration [Unknown]
  - Off label use [Unknown]

NARRATIVE: CASE EVENT DATE: 201903
